FAERS Safety Report 15138001 (Version 2)
Quarter: 2018Q3

REPORT INFORMATION
  Report Type: Spontaneous
  Country: JP (occurrence: JP)
  Receive Date: 20180712
  Receipt Date: 20180820
  Transmission Date: 20181010
  Serious: Yes (Death, Hospitalization)
  Sender: FDA-Public Use
  Company Number: JP-ROCHE-2151760

PATIENT
  Sex: Female

DRUGS (1)
  1. BEVACIZUMAB. [Suspect]
     Active Substance: BEVACIZUMAB
     Indication: ANGIOSARCOMA
     Route: 065
     Dates: start: 201611

REACTIONS (3)
  - Hypertension [Recovering/Resolving]
  - Guillain-Barre syndrome [Recovered/Resolved]
  - Stewart-Treves syndrome [Fatal]
